FAERS Safety Report 9987007 (Version 1)
Quarter: 2014Q1

REPORT INFORMATION
  Report Type: Report from Study
  Country: US (occurrence: US)
  Receive Date: 20140307
  Receipt Date: 20140307
  Transmission Date: 20141002
  Serious: No
  Sender: FDA-Public Use
  Company Number: US-ABBVIE-13P-163-1082564-00

PATIENT
  Age: 11 Year
  Sex: Male
  Weight: 41.77 kg

DRUGS (4)
  1. HUMIRA [Suspect]
     Indication: JUVENILE IDIOPATHIC ARTHRITIS
     Dates: start: 20130312
  2. METHOTREXATE [Concomitant]
     Indication: JUVENILE IDIOPATHIC ARTHRITIS
     Route: 050
  3. NAPROSYN [Concomitant]
     Indication: JUVENILE IDIOPATHIC ARTHRITIS
  4. FOLIC ACID [Concomitant]
     Indication: VITAMIN SUPPLEMENTATION

REACTIONS (3)
  - Wrong technique in drug usage process [Recovered/Resolved]
  - Injection site pain [Recovered/Resolved]
  - Injection site reaction [Recovered/Resolved]
